FAERS Safety Report 8785369 (Version 3)
Quarter: 2013Q4

REPORT INFORMATION
  Report Type: Spontaneous
  Country: None (occurrence: None)
  Receive Date: 20120831
  Receipt Date: 20131025
  Transmission Date: 20140711
  Serious: Yes (Death, Life-Threatening, Hospitalization)
  Sender: FDA-Public Use
  Company Number: 2012P1055336

PATIENT
  Age: 79 Year
  Sex: Male

DRUGS (5)
  1. DIGOXIN [Suspect]
     Indication: CARDIAC FAILURE
     Route: 042
     Dates: start: 20120712, end: 20120715
  2. BLINDED VACCINE TRIAL MED INJECTION (NO PREF. NAME) [Suspect]
     Indication: PROPHYLAXIS
     Route: 030
     Dates: start: 20110309
  3. FUROSEMIDE [Suspect]
     Dates: start: 20120709
  4. UNSPECIFIED ANTIBIOTIC [Concomitant]
  5. NITROGLYCERINE [Concomitant]

REACTIONS (14)
  - Renal failure acute [None]
  - Supraventricular tachycardia [None]
  - Leukocytosis [None]
  - Dyspnoea [None]
  - Pyrexia [None]
  - General physical health deterioration [None]
  - Cardioactive drug level increased [None]
  - Multi-organ failure [None]
  - Bacterial infection [None]
  - Hypokalaemia [None]
  - Urinary tract infection [None]
  - Left ventricular failure [None]
  - Respiratory tract infection [None]
  - Overdose [None]
